FAERS Safety Report 20516418 (Version 1)
Quarter: 2022Q1

REPORT INFORMATION
  Report Type: Spontaneous
  Country: US (occurrence: None)
  Receive Date: 20220225
  Receipt Date: 20220225
  Transmission Date: 20220423
  Serious: Yes (Death, Hospitalization)
  Sender: FDA-Public Use
  Company Number: US-MDD US Operations-MDD202202-000258

PATIENT
  Age: 80 Year
  Sex: Male

DRUGS (2)
  1. APOKYN [Suspect]
     Active Substance: APOMORPHINE HYDROCHLORIDE
     Indication: Parkinson^s disease
     Dates: start: 20211119
  2. APOKYN [Suspect]
     Active Substance: APOMORPHINE HYDROCHLORIDE
     Route: 058

REACTIONS (6)
  - Pneumonia aspiration [Fatal]
  - Arrhythmia [Unknown]
  - Hypernatraemia [Unknown]
  - Staphylococcal infection [Unknown]
  - Chronic obstructive pulmonary disease [Unknown]
  - Atrial fibrillation [Unknown]

NARRATIVE: CASE EVENT DATE: 20220202
